FAERS Safety Report 9173782 (Version 2)
Quarter: 2013Q2

REPORT INFORMATION
  Report Type: Spontaneous
  Country: US (occurrence: None)
  Receive Date: 20130318
  Receipt Date: 20130520
  Transmission Date: 20140414
  Serious: Yes (Hospitalization)
  Sender: FDA-Public Use
  Company Number: ACO_34730_2013

PATIENT
  Age: 70 Year
  Sex: Female
  Weight: 60.8 kg

DRUGS (21)
  1. AMPYRA (DALFAMPRIDINE) TABLET, 10MG [Suspect]
     Indication: GAIT DISTURBANCE
     Route: 048
     Dates: start: 201012
  2. ADVAIR (FLUTICASONE PROPIONATE, SALMETEROL XINAFOATE) [Concomitant]
  3. ASPIRIN (ACETYLSALICYLIC ACID [Concomitant]
  4. CALCIUM (CALCIUM) [Concomitant]
  5. PROAIR (SALBUTAMOL SULFATE) [Concomitant]
  6. CITALOPRAM [Concomitant]
  7. VITAMIN B-12 (CYANOCOBALAMIN) [Concomitant]
  8. ARICEPT (DONEPEZIL HYDROCHLORIDE) [Concomitant]
  9. DUONEB (IPRATROPIUM BROMIDE, SALBUTAMOL SULFATE) [Concomitant]
  10. FISH OIL (FISH OIL) [Concomitant]
  11. GABAPENTIN (GABAPENTIN) [Concomitant]
  12. KLOR-CON (POTASSIUM CHLORIDE) [Concomitant]
  13. LORTAB (HYDROCODONE BITARTRATE, PARACETAMOL, PROMETHAZINE HYDROCHLORIDE) [Concomitant]
  14. MILK OF MAGNESIA [Concomitant]
  15. OMEPRAZOLE (OMEPRAZOLE) [Concomitant]
  16. REBIF (INTERFERON BETA-1A) [Concomitant]
  17. SIMVASTATIN (SIMVASTATIN) [Concomitant]
  18. TRAMADOL (TRAMADOL HYDROCHLORIDE) [Concomitant]
  19. OXYGEN (OXYGEN) [Concomitant]
  20. VITAMIN D3 (COLECALCIFEROL) [Concomitant]
  21. CLONAZEPAM (CLONAZEPAM) [Concomitant]

REACTIONS (7)
  - Pneumonia [None]
  - Hiatus hernia [None]
  - Gastrooesophageal reflux disease [None]
  - Asthma [None]
  - Laryngitis [None]
  - Wrong technique in drug usage process [None]
  - Dysphagia [None]
